FAERS Safety Report 23301281 (Version 1)
Quarter: 2023Q4

REPORT INFORMATION
  Report Type: Spontaneous
  Country: US (occurrence: US)
  Receive Date: 20231215
  Receipt Date: 20231215
  Transmission Date: 20240110
  Serious: No
  Sender: FDA-Public Use
  Company Number: US-PFIZER INC-202300426561

PATIENT
  Age: 9 Year
  Sex: Male

DRUGS (1)
  1. GENOTROPIN [Suspect]
     Active Substance: SOMATROPIN
     Indication: Autoimmune thyroiditis
     Dosage: 1.3MG DAILY (BASED ON 0.3MG/KG/WEEK)
     Dates: start: 202208

REACTIONS (5)
  - Injection site pain [Unknown]
  - Device issue [Unknown]
  - Device difficult to use [Unknown]
  - Product prescribing error [Unknown]
  - Off label use [Unknown]

NARRATIVE: CASE EVENT DATE: 20220801
